FAERS Safety Report 10331089 (Version 2)
Quarter: 2014Q1

REPORT INFORMATION
  Report Type: Spontaneous
  Country: US (occurrence: None)
  Receive Date: 20120817
  Receipt Date: 20130815
  Transmission Date: 20141002
  Serious: Yes (Other)
  Sender: FDA-Public Use
  Company Number: ADR-2012-00793

PATIENT
  Age: 51 Year
  Sex: Male

DRUGS (6)
  1. BACLOFEN INTRATHECAL [Suspect]
     Indication: LUMBAR RADICULOPATHY
  2. BACLOFEN INTRATHECAL [Suspect]
     Indication: PAIN
  3. MORPHINE [Concomitant]
  4. CLONIDINE [Concomitant]
  5. BUPIVACAINE [Concomitant]
  6. ASTRAMORPH [Concomitant]

REACTIONS (8)
  - Therapeutic response unexpected [None]
  - Pain [None]
  - Pain in extremity [None]
  - Therapeutic response decreased [None]
  - Overdose [None]
  - Drug withdrawal syndrome [None]
  - Hypoaesthesia [None]
  - Dizziness [None]
